FAERS Safety Report 22250333 (Version 4)
Quarter: 2025Q2

REPORT INFORMATION
  Report Type: Spontaneous
  Country: US (occurrence: US)
  Receive Date: 20230425
  Receipt Date: 20250606
  Transmission Date: 20250717
  Serious: Yes (Other)
  Sender: PFIZER
  Company Number: US-PFIZER INC-PV202300037959

PATIENT
  Age: 74 Year
  Sex: Female
  Weight: 59.87 kg

DRUGS (14)
  1. XELJANZ [Suspect]
     Active Substance: TOFACITINIB CITRATE
     Indication: Rheumatoid arthritis
     Dosage: 5 MG, 1X/DAY
  2. XELJANZ [Suspect]
     Active Substance: TOFACITINIB CITRATE
     Indication: Osteoarthritis
  3. EUTHYROX [Concomitant]
     Active Substance: LEVOTHYROXINE SODIUM
  4. MIRALAX [Concomitant]
     Active Substance: POLYETHYLENE GLYCOL 3350
  5. DICYCLOMINE [Concomitant]
     Active Substance: DICYCLOMINE HYDROCHLORIDE
  6. PRAVASTATIN [Concomitant]
     Active Substance: PRAVASTATIN
  7. OMEPRAZOLE [Concomitant]
     Active Substance: OMEPRAZOLE
  8. CELEBREX [Concomitant]
     Active Substance: CELECOXIB
  9. PROLIA [Concomitant]
     Active Substance: DENOSUMAB
  10. GABAPENTIN [Concomitant]
     Active Substance: GABAPENTIN
  11. ZINC [Concomitant]
     Active Substance: ZINC
  12. VITAMIN D NOS [Concomitant]
     Active Substance: CHOLECALCIFEROL\ERGOCALCIFEROL
  13. CEPHALEXIN [Concomitant]
     Active Substance: CEPHALEXIN
  14. CARISOPRODOL [Concomitant]
     Active Substance: CARISOPRODOL

REACTIONS (5)
  - Shoulder fracture [Unknown]
  - Appendicitis perforated [Unknown]
  - Nasopharyngitis [Unknown]
  - Muscle disorder [Unknown]
  - Intentional product misuse [Unknown]
